FAERS Safety Report 5926802-8 (Version None)
Quarter: 2008Q4

REPORT INFORMATION
  Report Type: 
  Country: None (occurrence: None)
  Receive Date: 20081017
  Receipt Date: 20081010
  Transmission Date: 20090506
  Serious: Yes (Hospitalization)
  Sender: FDA-Public Use
  Company Number: 2008SP020722

PATIENT
  Age: 41 Year
  Sex: Male

DRUGS (3)
  1. PEG-INTRON [Suspect]
     Indication: HEPATITIS C
     Dosage: SC
     Route: 058
     Dates: start: 20080209, end: 20080815
  2. RIBAVIRIN [Suspect]
     Indication: HEPATITIS C
     Dosage: PO
     Route: 048
     Dates: start: 20080209, end: 20080815
  3. EFFEXOR XR [Concomitant]

REACTIONS (4)
  - ABDOMINAL PAIN UPPER [None]
  - DEHYDRATION [None]
  - DEPRESSION [None]
  - PANCREATITIS [None]
